FAERS Safety Report 5821475-7 (Version None)
Quarter: 2008Q3

REPORT INFORMATION
  Report Type: 
  Country: None (occurrence: None)
  Receive Date: 20080724
  Receipt Date: 20080716
  Transmission Date: 20090109
  Serious: Yes (Congenital Anomaly)
  Sender: FDA-Public Use
  Company Number: B0529486A

PATIENT
  Sex: Female
  Weight: 3.3 kg

DRUGS (3)
  1. ZIDOVUDINE [Suspect]
     Indication: HIV INFECTION
  2. TRUVADA [Suspect]
     Indication: HIV INFECTION
  3. KALETRA [Suspect]
     Indication: HIV INFECTION

REACTIONS (2)
  - CLINODACTYLY [None]
  - CONGENITAL ANOMALY [None]
